FAERS Safety Report 11970493 (Version 1)
Quarter: 2016Q1

REPORT INFORMATION
  Report Type: Report from Study
  Country: US (occurrence: US)
  Receive Date: 20160128
  Receipt Date: 20160128
  Transmission Date: 20160526
  Serious: No
  Sender: FDA-Public Use
  Company Number: US-ABBVIE-15K-163-1392739-00

PATIENT
  Sex: Female
  Weight: 104.42 kg

DRUGS (5)
  1. HUMIRA [Suspect]
     Active Substance: ADALIMUMAB
     Indication: PSORIASIS
     Route: 065
  2. HUMIRA [Suspect]
     Active Substance: ADALIMUMAB
     Dosage: ONE WEEK AFTER 80 MG DOSE
     Route: 065
     Dates: start: 2013, end: 201503
  3. METHOTREXATE [Suspect]
     Active Substance: METHOTREXATE
     Indication: ARTHRITIS
     Route: 048
     Dates: start: 2013, end: 2013
  4. HUMIRA [Suspect]
     Active Substance: ADALIMUMAB
     Route: 065
     Dates: start: 201504
  5. METHOTREXATE [Suspect]
     Active Substance: METHOTREXATE
     Route: 065
     Dates: start: 2013

REACTIONS (8)
  - Tooth infection [Recovered/Resolved]
  - Nausea [Unknown]
  - Gait disturbance [Unknown]
  - Osteoarthritis [Not Recovered/Not Resolved]
  - Psoriasis [Recovered/Resolved]
  - Polyarthritis [Not Recovered/Not Resolved]
  - Toothache [Recovered/Resolved]
  - Injection site papule [Not Recovered/Not Resolved]

NARRATIVE: CASE EVENT DATE: 2013
